FAERS Safety Report 10238373 (Version 1)
Quarter: 2014Q2

REPORT INFORMATION
  Report Type: Spontaneous
  Country: GB (occurrence: GB)
  Receive Date: 20140616
  Receipt Date: 20140616
  Transmission Date: 20141212
  Serious: Yes (Other)
  Sender: FDA-Public Use
  Company Number: GB-ORION CORPORATION ORION PHARMA-ENTC2014-0203

PATIENT
  Sex: Male

DRUGS (3)
  1. STALEVO [Suspect]
     Indication: PARKINSON^S DISEASE
     Route: 065
  2. REQUIP XL [Suspect]
     Indication: PARKINSON^S DISEASE
     Route: 065
  3. APOMORPHINE [Suspect]
     Indication: PARKINSON^S DISEASE
     Route: 065

REACTIONS (3)
  - Dementia [Not Recovered/Not Resolved]
  - Poor quality sleep [Not Recovered/Not Resolved]
  - Somnolence [Not Recovered/Not Resolved]
